FAERS Safety Report 18309346 (Version 1)
Quarter: 2020Q3

REPORT INFORMATION
  Report Type: Spontaneous
  Country: US (occurrence: US)
  Receive Date: 20200925
  Receipt Date: 20200925
  Transmission Date: 20201103
  Serious: No
  Sender: FDA-Public Use
  Company Number: US-HORIZON-TEP-1697-2020

PATIENT
  Age: 38 Year
  Sex: Female

DRUGS (1)
  1. TEPEZZA [Suspect]
     Active Substance: TEPROTUMUMAB-TRBW
     Indication: ENDOCRINE OPHTHALMOPATHY
     Dosage: ONCE EVERY 3 WEEKS
     Route: 042
     Dates: start: 202005

REACTIONS (7)
  - Diplopia [Recovering/Resolving]
  - Swelling [Recovered/Resolved]
  - Asthenia [Unknown]
  - Fatigue [Unknown]
  - Photophobia [Not Recovered/Not Resolved]
  - Visual impairment [Recovered/Resolved]
  - Vision blurred [Not Recovered/Not Resolved]
